FAERS Safety Report 13998582 (Version 1)
Quarter: 2017Q3

REPORT INFORMATION
  Report Type: Spontaneous
  Country: US (occurrence: None)
  Receive Date: 20170922
  Receipt Date: 20170922
  Transmission Date: 20171128
  Serious: Yes (Hospitalization)
  Sender: FDA-Public Use
  Company Number: None

PATIENT
  Sex: Male
  Weight: 59.5 kg

DRUGS (8)
  1. THIOGUANINE (6-TG) [Suspect]
     Active Substance: THIOGUANINE ANHYDROUS
     Dates: end: 20170911
  2. CYTARABINE. [Suspect]
     Active Substance: CYTARABINE
     Dates: end: 20170908
  3. VINCRISTINE SULFATE. [Suspect]
     Active Substance: VINCRISTINE SULFATE
     Dates: end: 20170913
  4. DEXAMETHASONE. [Suspect]
     Active Substance: DEXAMETHASONE
     Dates: end: 20170816
  5. DOXORUBICIN HYDROCHLORIDE. [Suspect]
     Active Substance: DOXORUBICIN HYDROCHLORIDE
     Dates: end: 20170808
  6. METHOTREXATE. [Suspect]
     Active Substance: METHOTREXATE
     Dates: end: 20170905
  7. ONCASPAR [Suspect]
     Active Substance: PEGASPARGASE
     Dates: end: 20170913
  8. CYCLOPHOSPHAMIDE. [Suspect]
     Active Substance: CYCLOPHOSPHAMIDE
     Dates: end: 20170829

REACTIONS (9)
  - Septic shock [None]
  - Abdominal pain [None]
  - Bacillus test positive [None]
  - Hypotension [None]
  - Bacteraemia [None]
  - Nausea [None]
  - Febrile neutropenia [None]
  - Escherichia test positive [None]
  - Thrombocytopenia [None]

NARRATIVE: CASE EVENT DATE: 20170916
